FAERS Safety Report 11458206 (Version 1)
Quarter: 2015Q3

REPORT INFORMATION
  Report Type: Spontaneous
  Country: US (occurrence: None)
  Receive Date: 20150903
  Receipt Date: 20150903
  Transmission Date: 20151125
  Serious: Yes (Other)
  Sender: FDA-Public Use
  Company Number: None

PATIENT
  Age: 42 Year
  Sex: Female
  Weight: 111.59 kg

DRUGS (9)
  1. INFED [Suspect]
     Active Substance: IRON DEXTRAN
     Indication: ANAEMIA
     Route: 042
     Dates: start: 20150902
  2. NEURONTIN [Concomitant]
     Active Substance: GABAPENTIN
  3. D-D RIBOSE [Concomitant]
  4. VITAMIN D3 [Concomitant]
     Active Substance: CHOLECALCIFEROL
  5. ZYRTEC [Concomitant]
     Active Substance: CETIRIZINE HYDROCHLORIDE
  6. MECLIZINE [Concomitant]
     Active Substance: MECLIZINE\MECLIZINE HYDROCHLORIDE
  7. ZINC [Concomitant]
     Active Substance: ZINC\ZINC CHLORIDE
  8. INFED [Suspect]
     Active Substance: IRON DEXTRAN
     Indication: SERUM FERRITIN
     Route: 042
     Dates: start: 20150902
  9. MAGNESIUM [Concomitant]
     Active Substance: MAGNESIUM

REACTIONS (3)
  - Chest pain [None]
  - Nausea [None]
  - Chest discomfort [None]

NARRATIVE: CASE EVENT DATE: 20150902
